FAERS Safety Report 20892792 (Version 5)
Quarter: 2023Q2

REPORT INFORMATION
  Report Type: Spontaneous
  Country: AT (occurrence: AT)
  Receive Date: 20220531
  Receipt Date: 20230418
  Transmission Date: 20230721
  Serious: Yes (Other)
  Sender: FDA-Public Use
  Company Number: AT-CELLTRION INC.-2022AT007880

PATIENT

DRUGS (22)
  1. RITUXIMAB [Suspect]
     Active Substance: RITUXIMAB
     Indication: Follicular lymphoma
     Dosage: THERAPY WITH BR; 6 CYCLES
     Dates: start: 201802, end: 201807
  2. RITUXIMAB [Suspect]
     Active Substance: RITUXIMAB
     Indication: Diffuse large B-cell lymphoma
     Dosage: RENEWED RITUXIMAB MAINTENANCE THERAPY
     Dates: start: 201807, end: 201906
  3. RITUXIMAB [Suspect]
     Active Substance: RITUXIMAB
     Dosage: R-DHAP
     Dates: start: 202002
  4. RITUXIMAB [Suspect]
     Active Substance: RITUXIMAB
     Dosage: R-ICE, 2 CYCLES
     Dates: start: 202003, end: 202004
  5. RITUXIMAB [Suspect]
     Active Substance: RITUXIMAB
     Dosage: 2 CYCLES OF BRIDGING-THERAPY WITH ANTIBODY-AGENT CONJUGATE POLATUZUMAB VEDOTIN IN COMBINATION WITH B
     Dates: start: 202006, end: 202007
  6. RITUXIMAB [Suspect]
     Active Substance: RITUXIMAB
     Dosage: UNK, CYCLIC
     Route: 065
  7. RITUXIMAB [Suspect]
     Active Substance: RITUXIMAB
     Dosage: UNK
  8. BENDAMUSTINE [Suspect]
     Active Substance: BENDAMUSTINE
     Indication: Follicular lymphoma
     Dosage: THERAPY WITH BR, 6 CYCLES
     Dates: start: 201802, end: 201807
  9. BENDAMUSTINE [Suspect]
     Active Substance: BENDAMUSTINE
     Dosage: RENEWED MAINTENANCE RITUXIMAB THERAPY
     Dates: start: 201807, end: 201906
  10. BENDAMUSTINE [Suspect]
     Active Substance: BENDAMUSTINE
     Dosage: 2 CYCLES OF BRIDGING-THERAPY WITH ANTIBODY-AGENT CONJUGATE POLATUZUMAB VEDOTIN IN COMBINATION WITH B
     Dates: start: 202006, end: 202007
  11. DEXAMETHASONE [Suspect]
     Active Substance: DEXAMETHASONE
     Indication: Diffuse large B-cell lymphoma
     Dosage: R-DHAP
     Dates: start: 202002
  12. DEXAMETHASONE [Suspect]
     Active Substance: DEXAMETHASONE
     Dosage: UNK, CYCLIC
     Route: 065
  13. CYTARABINE [Suspect]
     Active Substance: CYTARABINE
     Indication: Diffuse large B-cell lymphoma
     Dosage: R-DHAP, HIGH DOSAGE OF ARA-C
     Dates: start: 202002
  14. CISPLATIN [Suspect]
     Active Substance: CISPLATIN
     Indication: Diffuse large B-cell lymphoma
     Dosage: R-DHAP
     Dates: start: 202002
  15. CISPLATIN [Suspect]
     Active Substance: CISPLATIN
     Dosage: UNK, CYCLIC
     Route: 065
  16. CISPLATIN [Suspect]
     Active Substance: CISPLATIN
     Dosage: UNK
  17. IFOSFAMIDE [Suspect]
     Active Substance: IFOSFAMIDE
     Indication: Diffuse large B-cell lymphoma
     Dosage: R-ICE, 2 CYCLES
     Dates: start: 202003, end: 202004
  18. CARBOPLATIN [Suspect]
     Active Substance: CARBOPLATIN
     Indication: Diffuse large B-cell lymphoma
     Dosage: R-ICE, 2 CYCLES
     Dates: start: 202003, end: 202004
  19. ETOPOSIDE [Suspect]
     Active Substance: ETOPOSIDE
     Indication: Diffuse large B-cell lymphoma
     Dosage: R-ICE, 2 CYCLES
     Dates: start: 202003, end: 202004
  20. GENETICALLY-MODIFIED AUTOLOGOUS T CELLS NOS [Suspect]
     Active Substance: GENETICALLY-MODIFIED AUTOLOGOUS T CELLS NOS
     Indication: Diffuse large B-cell lymphoma
     Dosage: UNK
     Dates: start: 202007
  21. POLATUZUMAB VEDOTIN [Suspect]
     Active Substance: POLATUZUMAB VEDOTIN
     Indication: Diffuse large B-cell lymphoma
     Dosage: UNK UNK, CYCLIC
     Dates: start: 202006, end: 202007
  22. CYTARABINE [Suspect]
     Active Substance: CYTARABINE
     Indication: Diffuse large B-cell lymphoma
     Dosage: UNK, CYCLIC
     Route: 065

REACTIONS (6)
  - Diffuse large B-cell lymphoma [Recovered/Resolved]
  - Lymphoma transformation [Recovered/Resolved]
  - Renal failure [Unknown]
  - Therapy partial responder [Unknown]
  - Product use in unapproved indication [Unknown]
  - Product use issue [Unknown]

NARRATIVE: CASE EVENT DATE: 20200101
